FAERS Safety Report 8237207-1 (Version None)
Quarter: 2012Q1

REPORT INFORMATION
  Report Type: 
  Country: None (occurrence: None)
  Receive Date: 20120327
  Receipt Date: 20120327
  Transmission Date: 20120608
  Serious: Yes (Hospitalization)
  Sender: FDA-Public Use
  Company Number: None

PATIENT
  Age: 63 Year
  Sex: Male
  Weight: 92.532 kg

DRUGS (1)
  1. INTERFERON [Suspect]
     Indication: MALIGNANT MELANOMA
     Dosage: 50,000,000
     Route: 042
     Dates: start: 20111205, end: 20120103

REACTIONS (3)
  - CONVULSION [None]
  - CEREBROVASCULAR ACCIDENT [None]
  - IMPAIRED WORK ABILITY [None]
